FAERS Safety Report 23330453 (Version 1)
Quarter: 2023Q4

REPORT INFORMATION
  Report Type: Spontaneous
  Country: US (occurrence: US)
  Receive Date: 20231222
  Receipt Date: 20231222
  Transmission Date: 20240110
  Serious: No
  Sender: FDA-Public Use
  Company Number: US-EDENBRIDGE PHARMACEUTICALS, LLC-US-2023EDE000040

PATIENT
  Sex: Female

DRUGS (3)
  1. IVERMECTIN [Suspect]
     Active Substance: IVERMECTIN
     Indication: Onchocerciasis
     Dosage: UNK DF
     Route: 048
  2. IVERMECTIN [Suspect]
     Active Substance: IVERMECTIN
     Dosage: UNK
     Route: 048
  3. IVERMECTIN [Suspect]
     Active Substance: IVERMECTIN
     Dosage: 5 TABLETS OF IVERMECTIN ONCE EVERY WEEK
     Route: 048

REACTIONS (7)
  - Mental impairment [Unknown]
  - Lethargy [Unknown]
  - Rash [Not Recovered/Not Resolved]
  - Feeling abnormal [Unknown]
  - Illness [Unknown]
  - Inappropriate schedule of product administration [Unknown]
  - Drug ineffective [Unknown]
